FAERS Safety Report 8021124-6 (Version None)
Quarter: 2012Q1

REPORT INFORMATION
  Report Type: 
  Country: None (occurrence: None)
  Receive Date: 20120104
  Receipt Date: 20111229
  Transmission Date: 20120608
  Serious: No
  Sender: FDA-Public Use
  Company Number: US-PFIZER INC-2011242146

PATIENT
  Sex: Male

DRUGS (2)
  1. METHOTREXATE [Suspect]
     Indication: PSORIASIS
     Dosage: 7 TABLETS WEEKLY (1 MONTH+10 DAYS)
     Route: 048
     Dates: start: 20110811, end: 20110921
  2. FOLIC ACID [Suspect]
     Indication: PSORIASIS
     Dosage: 1 TAB EVERY DAY EXCEPT DAY FOR METHOTREXATE
     Route: 048
     Dates: start: 20110811, end: 20110921

REACTIONS (2)
  - BLOOD GLUCOSE INCREASED [None]
  - DRUG INEFFECTIVE [None]
